FAERS Safety Report 18744030 (Version 2)
Quarter: 2021Q3

REPORT INFORMATION
  Report Type: Spontaneous
  Country: CN (occurrence: CN)
  Receive Date: 20210115
  Receipt Date: 20210730
  Transmission Date: 20211014
  Serious: Yes (Other)
  Sender: FDA-Public Use
  Company Number: CN-JNJFOC-20210110639

PATIENT

DRUGS (2)
  1. INVOKANA [Suspect]
     Active Substance: CANAGLIFLOZIN
     Indication: TYPE 2 DIABETES MELLITUS
  2. INVOKANA [Suspect]
     Active Substance: CANAGLIFLOZIN
     Indication: CARDIOVASCULAR DISORDER
     Route: 048

REACTIONS (5)
  - Cerebrovascular accident [Unknown]
  - Hypoglycaemia [Unknown]
  - Cardiovascular disorder [Unknown]
  - Infection [Unknown]
  - Gastrointestinal disorder [Unknown]
